FAERS Safety Report 9379896 (Version 1)
Quarter: 2013Q2

REPORT INFORMATION
  Report Type: Spontaneous
  Country: US (occurrence: None)
  Receive Date: 20130627
  Receipt Date: 20130627
  Transmission Date: 20140414
  Serious: Yes (Other)
  Sender: FDA-Public Use
  Company Number: 2012P1022219

PATIENT
  Age: 65 Year
  Sex: Male

DRUGS (4)
  1. INFUMORPH [Suspect]
     Indication: PAIN
     Route: 037
  2. INFUMORPH [Suspect]
     Indication: PAIN
     Route: 037
  3. NAROPIN [Suspect]
  4. BUPIVACAINE [Suspect]

REACTIONS (4)
  - Underdose [None]
  - Device battery issue [None]
  - Malaise [None]
  - Drug withdrawal syndrome [None]
